FAERS Safety Report 20490323 (Version 1)
Quarter: 2022Q1

REPORT INFORMATION
  Report Type: Spontaneous
  Country: CN (occurrence: CN)
  Receive Date: 20220218
  Receipt Date: 20220218
  Transmission Date: 20220423
  Serious: Yes (Other)
  Sender: FDA-Public Use
  Company Number: CN-SLATE RUN PHARMACEUTICALS-22CN000911

PATIENT

DRUGS (2)
  1. METHOCARBAMOL [Suspect]
     Active Substance: METHOCARBAMOL
     Indication: Tonic posturing
     Dosage: 0.025 GRAM, BID
     Route: 048
  2. VALPROIC ACID [Concomitant]
     Active Substance: VALPROIC ACID
     Indication: Tonic posturing
     Dosage: UNK

REACTIONS (3)
  - Tonic posturing [Unknown]
  - Electroencephalogram abnormal [Unknown]
  - Off label use [Recovered/Resolved]
